FAERS Safety Report 8571285-5 (Version None)
Quarter: 2012Q3

REPORT INFORMATION
  Report Type: 
  Country: None (occurrence: None)
  Receive Date: 20120806
  Receipt Date: 20120731
  Transmission Date: 20120928
  Serious: No
  Sender: FDA-Public Use
  Company Number: US-PFIZER INC-2012186753

PATIENT
  Sex: Male

DRUGS (3)
  1. FLUCONAZOLE [Interacting]
     Indication: RASH
     Dosage: UNK
  2. VIAGRA [Suspect]
     Dosage: 50 MG, UNK
     Route: 048
     Dates: start: 20120101
  3. VIAGRA [Interacting]
     Dosage: 100 MG, UNK
     Route: 048
     Dates: start: 20120101

REACTIONS (2)
  - DRUG INTERACTION [None]
  - DRUG INEFFECTIVE [None]
